FAERS Safety Report 4971001-X (Version None)
Quarter: 2006Q2

REPORT INFORMATION
  Report Type: 
  Country: None (occurrence: None)
  Receive Date: 20060412
  Receipt Date: 20060223
  Transmission Date: 20061013
  Serious: Yes (Hospitalization)
  Sender: FDA-Public Use
  Company Number: PHEH2006US02553

PATIENT
  Age: 69 Year
  Sex: Male

DRUGS (1)
  1. DIOVAN [Suspect]
     Indication: HYPERTENSION
     Dosage: 80 MG BID OR TID, DEPENDING ON BP
     Route: 048

REACTIONS (4)
  - BLOOD PRESSURE DECREASED [None]
  - FATIGUE [None]
  - HEART RATE DECREASED [None]
  - YELLOW SKIN [None]
